FAERS Safety Report 8363199-0 (Version None)
Quarter: 2012Q2

REPORT INFORMATION
  Report Type: 
  Country: None (occurrence: None)
  Receive Date: 20120516
  Receipt Date: 20111118
  Transmission Date: 20120825
  Serious: Yes (Hospitalization)
  Sender: FDA-Public Use
  Company Number: US-ALEXION-A201101758

PATIENT
  Sex: Female

DRUGS (22)
  1. TYLENOL (CAPLET) [Concomitant]
     Dosage: 650 MG Q 4 HOURS PRN
     Route: 048
  2. ASPIRIN [Concomitant]
     Dosage: 81 MG QD
  3. COLACE [Concomitant]
     Dosage: 100 MG BID
  4. ZOLPIDEM [Concomitant]
     Dosage: 5 MG, QD
  5. EXJADE [Concomitant]
     Dosage: 250 MG QD
     Route: 048
  6. BRIMONIDINE TARTRATE [Concomitant]
     Route: 031
  7. GLIPIZIDE [Concomitant]
     Dosage: 2.5 MG BID
  8. PREDNISONE [Concomitant]
     Dosage: 2 MG, QD
  9. ALLOPURINOL [Concomitant]
     Dosage: 300 MG QD
  10. ATENOLOL [Concomitant]
     Dosage: 25 MG BID
     Route: 048
  11. SIMVASTATIN [Concomitant]
     Dosage: 20 MG, QD
  12. SOLIRIS [Suspect]
     Indication: PAROXYSMAL NOCTURNAL HAEMOGLOBINURIA
     Dosage: UNK Q2W
     Route: 042
  13. TIMOLOL MALEATE [Concomitant]
     Route: 031
  14. AMLODIPINE BESYLATE [Concomitant]
     Dosage: 5 MG QD
  15. FUROSEMIDE [Concomitant]
     Dosage: 20 MG QD
  16. LISINOPRIL [Concomitant]
     Dosage: 20 MG QD
  17. PROTONIX [Concomitant]
     Dosage: 20 MG QD
  18. COMBIVENT [Concomitant]
     Dosage: 2 PUFFS Q 4 HOURS PRN
  19. MAGNESIUM HYDROXIDE TAB [Concomitant]
     Dosage: 30 ML PRN
  20. OXYCODONE HCL [Concomitant]
     Dosage: 5 MG TID PRN
  21. PREDNISONE [Concomitant]
     Dosage: 5 MG IN PM
  22. NITROGLYCERIN [Concomitant]
     Dosage: 0.4 MG PRN
     Route: 060

REACTIONS (2)
  - DYSPNOEA [None]
  - ANAEMIA [None]
